FAERS Safety Report 5482322-9 (Version None)
Quarter: 2007Q4

REPORT INFORMATION
  Report Type: 
  Country: None (occurrence: None)
  Receive Date: 20071011
  Receipt Date: 20070928
  Transmission Date: 20080405
  Serious: Yes (Other)
  Sender: FDA-Public Use
  Company Number: US-JNJFOC-20071001793

PATIENT
  Age: 3 Year
  Sex: Male
  Weight: 15.42 kg

DRUGS (2)
  1. TYLENOL COLD [Suspect]
     Indication: COUGH
     Route: 048
  2. DIMETAPP [Suspect]
     Indication: COUGH
     Route: 048

REACTIONS (10)
  - COORDINATION ABNORMAL [None]
  - DRUG ADMINISTRATION ERROR [None]
  - DYSARTHRIA [None]
  - DYSSTASIA [None]
  - FALSE POSITIVE LABORATORY RESULT [None]
  - HYPOTONIA [None]
  - INAPPROPRIATE SCHEDULE OF DRUG ADMINISTRATION [None]
  - LETHARGY [None]
  - SPEECH DISORDER [None]
  - VOMITING [None]
